FAERS Safety Report 9165887 (Version 2)
Quarter: 2013Q2

REPORT INFORMATION
  Report Type: Report from Study
  Country: CR (occurrence: CR)
  Receive Date: 20130315
  Receipt Date: 20130410
  Transmission Date: 20140414
  Serious: Yes (Other)
  Sender: FDA-Public Use
  Company Number: CR-ROCHE-1201172

PATIENT
  Age: 60 Year
  Sex: Female

DRUGS (3)
  1. BONVIVA [Suspect]
     Indication: OSTEOPOROSIS
     Route: 048
     Dates: start: 20120123
  2. EPIVAL [Concomitant]
     Indication: EPILEPSY
  3. LEVOTHYROXINE [Concomitant]
     Indication: HYPOTHYROIDISM

REACTIONS (1)
  - Upper limb fracture [Recovered/Resolved]
